FAERS Safety Report 21371032 (Version 8)
Quarter: 2023Q4

REPORT INFORMATION
  Report Type: Spontaneous
  Country: US (occurrence: US)
  Receive Date: 20220923
  Receipt Date: 20231121
  Transmission Date: 20240109
  Serious: No
  Sender: FDA-Public Use
  Company Number: US-PFIZER INC-PV202200067547

PATIENT
  Age: 78 Year
  Sex: Male
  Weight: 53 kg

DRUGS (3)
  1. RETACRIT [Suspect]
     Active Substance: EPOETIN ALFA-EPBX
     Indication: Nephrogenic anaemia
     Dosage: 5000 IU (3TIMES/WEEK)
     Dates: start: 202203
  2. RETACRIT [Suspect]
     Active Substance: EPOETIN ALFA-EPBX
     Dosage: 500 IU [FREQUENCY: 3 TIMES/WK]
  3. RETACRIT [Suspect]
     Active Substance: EPOETIN ALFA-EPBX
     Dosage: EVERY ALTERNATE DAY
     Route: 030
     Dates: start: 202203

REACTIONS (2)
  - Disease progression [Unknown]
  - Dyspnoea [Unknown]

NARRATIVE: CASE EVENT DATE: 20220101
